FAERS Safety Report 9395529 (Version 1)
Quarter: 2013Q3

REPORT INFORMATION
  Report Type: Spontaneous
  Country: GB (occurrence: GB)
  Receive Date: 20130711
  Receipt Date: 20130711
  Transmission Date: 20140515
  Serious: Yes (Other)
  Sender: FDA-Public Use
  Company Number: GB-ASTELLAS-2013EU005774

PATIENT
  Sex: Female

DRUGS (1)
  1. VESICARE [Suspect]
     Indication: HYPERTONIC BLADDER
     Dosage: UNK
     Route: 065

REACTIONS (6)
  - Haematuria [Unknown]
  - Dysuria [Unknown]
  - Urinary tract infection [Unknown]
  - Cough [Unknown]
  - Dry throat [Unknown]
  - Dry mouth [Unknown]
